FAERS Safety Report 6200681-6 (Version None)
Quarter: 2009Q2

REPORT INFORMATION
  Report Type: 
  Country: None (occurrence: None)
  Receive Date: 20090522
  Receipt Date: 20090518
  Transmission Date: 20091009
  Serious: Yes (Other)
  Sender: FDA-Public Use
  Company Number: GB-MERCK-0905GBR00061

PATIENT
  Age: 75 Year
  Sex: Male

DRUGS (1)
  1. ZETIA [Suspect]
     Indication: BLOOD CHOLESTEROL INCREASED
     Route: 048
     Dates: start: 20090407, end: 20090411

REACTIONS (4)
  - ARTHRALGIA [None]
  - GOUT [None]
  - JOINT SWELLING [None]
  - JOINT WARMTH [None]
